FAERS Safety Report 20912329 (Version 1)
Quarter: 2022Q2

REPORT INFORMATION
  Report Type: Report from Study
  Country: CO (occurrence: CO)
  Receive Date: 20220603
  Receipt Date: 20220603
  Transmission Date: 20220721
  Serious: Yes (Other)
  Sender: FDA-Public Use
  Company Number: CO-ALLERGAN-2217762US

PATIENT
  Sex: Male
  Weight: 58 kg

DRUGS (4)
  1. BOTULINUM TOXIN TYPE A [Suspect]
     Active Substance: BOTULINUM TOXIN TYPE A
     Indication: Migraine
     Dosage: 200 UNITS, SINGLE
     Route: 058
     Dates: start: 20211014, end: 20211014
  2. BOTULINUM TOXIN TYPE A [Suspect]
     Active Substance: BOTULINUM TOXIN TYPE A
     Dosage: 200 UNITS, SINGLE
     Route: 058
     Dates: start: 20220119, end: 20220119
  3. FLUNARIZINE [Concomitant]
     Active Substance: FLUNARIZINE
     Indication: Migraine
     Dosage: 1 DF,  EVERY 12 OR 24 HOURS
     Route: 048
     Dates: start: 202110
  4. SEVEDOL EXTRA FUERTE [Concomitant]
     Indication: Migraine
     Dosage: 1 TABLET
     Route: 048
     Dates: start: 2020

REACTIONS (7)
  - Tremor [Not Recovered/Not Resolved]
  - Vomiting [Not Recovered/Not Resolved]
  - Vomiting [Not Recovered/Not Resolved]
  - Vision blurred [Not Recovered/Not Resolved]
  - Migraine [Not Recovered/Not Resolved]
  - Headache [Not Recovered/Not Resolved]
  - Hypoaesthesia [Not Recovered/Not Resolved]

NARRATIVE: CASE EVENT DATE: 20220501
